FAERS Safety Report 8794760 (Version 2)
Quarter: 2012Q4

REPORT INFORMATION
  Report Type: 
  Country: JP (occurrence: JP)
  Receive Date: 20120917
  Receipt Date: 20121029
  Transmission Date: 20130627
  Serious: Yes (Hospitalization, Other)
  Sender: FDA-Public Use
  Company Number: PHHY2012JP080513

PATIENT
  Age: 66 Year
  Sex: Female

DRUGS (2)
  1. ZOMETA [Suspect]
     Indication: METASTASES TO BONE
     Dosage: 4 mg, per administration
     Route: 042
     Dates: start: 2007, end: 201208
  2. ANASTROZOLE [Concomitant]
     Dosage: 1 mg, UNK
     Route: 048
     Dates: start: 2007, end: 20120909

REACTIONS (2)
  - Tubulointerstitial nephritis [Recovered/Resolved]
  - Metastases to lung [Unknown]
